FAERS Safety Report 9182065 (Version 1)
Quarter: 2013Q1

REPORT INFORMATION
  Report Type: Spontaneous
  Country: US (occurrence: None)
  Receive Date: 20130321
  Receipt Date: 20130321
  Transmission Date: 20140127
  Serious: Yes (Other)
  Sender: FDA-Public Use
  Company Number: None

PATIENT
  Age: 56 Year
  Sex: Female
  Weight: 61 kg

DRUGS (1)
  1. MAXALT MLT [Suspect]
     Route: 048
     Dates: start: 20120101

REACTIONS (2)
  - Product substitution issue [None]
  - Drug ineffective [None]
